FAERS Safety Report 23437465 (Version 2)
Quarter: 2024Q3

REPORT INFORMATION
  Report Type: Spontaneous
  Country: JP (occurrence: JP)
  Receive Date: 20240124
  Receipt Date: 20240801
  Transmission Date: 20241017
  Serious: Yes (Death)
  Sender: SANDOZ
  Company Number: JP-asahikaseip-2024-AER-00315

PATIENT
  Age: 78 Year
  Sex: Female

DRUGS (2)
  1. RECLAST [Suspect]
     Active Substance: ZOLEDRONIC ACID
     Indication: Product used for unknown indication
     Dosage: 5 MG, Q12MO, INTRAVENOUS DRIP
     Route: 042
     Dates: start: 20231013, end: 20231013
  2. RECLAST [Suspect]
     Active Substance: ZOLEDRONIC ACID
     Dosage: 5 MG, Q12MO, (5 MILLIGRAM(S), IN 1 YEAR)
     Route: 042
     Dates: start: 20210823

REACTIONS (1)
  - Death [Fatal]
